FAERS Safety Report 25705784 (Version 4)
Quarter: 2025Q3

REPORT INFORMATION
  Report Type: Spontaneous
  Country: US (occurrence: US)
  Receive Date: 20250820
  Receipt Date: 20250923
  Transmission Date: 20251020
  Serious: No
  Sender: PFIZER
  Company Number: US-PFIZER INC-202500164000

PATIENT
  Age: 15 Year
  Sex: Male

DRUGS (2)
  1. GENOTROPIN [Suspect]
     Active Substance: SOMATROPIN
     Dosage: 2.6 MG, DAILY (7 DAYS/WEEK)
  2. GENOTROPIN [Suspect]
     Active Substance: SOMATROPIN
     Dosage: 2.8 MG, DAILY

REACTIONS (5)
  - Drug dose omission by device [Unknown]
  - Incorrect dose administered by device [Unknown]
  - Device physical property issue [Unknown]
  - Device delivery system issue [Unknown]
  - Device difficult to use [Unknown]
